FAERS Safety Report 7827435-9 (Version None)
Quarter: 2011Q4

REPORT INFORMATION
  Report Type: 
  Country: None (occurrence: None)
  Receive Date: 20111020
  Receipt Date: 20111011
  Transmission Date: 20120403
  Serious: Yes (Other)
  Sender: FDA-Public Use
  Company Number: DE-BAYER-2011-075997

PATIENT
  Age: 34 Year
  Sex: Female
  Weight: 60 kg

DRUGS (1)
  1. MIRENA [Suspect]
     Indication: CONTRACEPTION
     Dosage: UNK
     Route: 015
     Dates: start: 20101001

REACTIONS (6)
  - TONGUE BLISTERING [None]
  - DYSPNOEA [None]
  - PANIC ATTACK [None]
  - TONGUE NEOPLASM BENIGN [None]
  - PHARYNGEAL HYPOAESTHESIA [None]
  - HYPOAESTHESIA ORAL [None]
